FAERS Safety Report 19570365 (Version 2)
Quarter: 2023Q2

REPORT INFORMATION
  Report Type: Spontaneous
  Country: JP (occurrence: JP)
  Receive Date: 20210715
  Receipt Date: 20230525
  Transmission Date: 20230721
  Serious: Yes (Other)
  Sender: FDA-Public Use
  Company Number: JP-FERRING-EVA202100999FERRINGPH

PATIENT

DRUGS (1)
  1. DINOPROSTONE [Suspect]
     Active Substance: DINOPROSTONE
     Indication: Induction of cervix ripening
     Dosage: 10 MG, ONCE/SINGLE
     Route: 067
     Dates: start: 20200818, end: 20200818

REACTIONS (1)
  - Hypertension [Recovered/Resolved]
